FAERS Safety Report 5781075-4 (Version None)
Quarter: 2008Q2

REPORT INFORMATION
  Report Type: 
  Country: None (occurrence: None)
  Receive Date: 20080618
  Receipt Date: 20080609
  Transmission Date: 20081010
  Serious: Yes (Other)
  Sender: FDA-Public Use
  Company Number: DSA_31955_2008

PATIENT
  Sex: Female

DRUGS (4)
  1. ATIVAN [Suspect]
     Indication: INSOMNIA
     Dosage: (2 MG AT BEDTIME ORAL)
     Route: 048
     Dates: start: 19780101
  2. ATIVAN [Suspect]
     Indication: INSOMNIA
     Dosage: (2 MG ORAL)
     Route: 048
  3. TRAZODONE HCL [Concomitant]
  4. DIURETICS [Concomitant]

REACTIONS (5)
  - AORTIC VALVE DISEASE [None]
  - INSOMNIA [None]
  - PALPITATIONS [None]
  - PHARMACEUTICAL PRODUCT COMPLAINT [None]
  - POLLAKIURIA [None]
